FAERS Safety Report 10636991 (Version 3)
Quarter: 2014Q4

REPORT INFORMATION
  Report Type: Report from Study
  Country: US (occurrence: US)
  Receive Date: 20141208
  Receipt Date: 20141226
  Transmission Date: 20150529
  Serious: Yes (Death)
  Sender: FDA-Public Use
  Company Number: US-AMGEN-USASL2014094042

PATIENT
  Age: 93 Year
  Sex: Female
  Weight: 87.08 kg

DRUGS (1)
  1. PROLIA [Suspect]
     Active Substance: DENOSUMAB
     Indication: PRODUCT USED FOR UNKNOWN INDICATION
     Dosage: 60 MG/ML, Q6MO
     Route: 058
     Dates: start: 20140715, end: 20140715

REACTIONS (3)
  - Pneumonia aspiration [Fatal]
  - Incorrect route of drug administration [Unknown]
  - Quadriplegia [Fatal]
